FAERS Safety Report 7954483-0 (Version None)
Quarter: 2011Q4

REPORT INFORMATION
  Report Type: 
  Country: None (occurrence: None)
  Receive Date: 20111125
  Receipt Date: 20111110
  Transmission Date: 20120403
  Serious: Yes (Other)
  Sender: FDA-Public Use
  Company Number: CA-145261

PATIENT
  Sex: Female

DRUGS (2)
  1. PAXIL [Concomitant]
  2. WINRHO SDF LIQUID [Suspect]
     Indication: RHESUS INCOMPATIBILITY
     Dosage: (300 ?G TOTAL)
     Dates: start: 20110616, end: 20110616

REACTIONS (8)
  - OEDEMA [None]
  - HEADACHE [None]
  - MATERNAL EXPOSURE DURING PREGNANCY [None]
  - GESTATIONAL DIABETES [None]
  - HLA MARKER STUDY POSITIVE [None]
  - BLOOD PRESSURE DIASTOLIC INCREASED [None]
  - INTRA-UTERINE DEATH [None]
  - ANTIBODY TEST POSITIVE [None]
